FAERS Safety Report 10476578 (Version 1)
Quarter: 2014Q3

REPORT INFORMATION
  Report Type: Spontaneous
  Country: US (occurrence: None)
  Receive Date: 20140923
  Receipt Date: 20140923
  Transmission Date: 20150326
  Serious: Yes (Other)
  Sender: FDA-Public Use
  Company Number: 001802775A

PATIENT
  Age: 11 Year
  Sex: Female

DRUGS (4)
  1. PROACTIV PLUS COMPLEXION PERFECTING HYDRATOR [Suspect]
     Active Substance: SALICYLIC ACID
     Indication: ACNE
     Dosage: TWICE DAILY. DERMAL
  2. PROACTIVPLUS SKIN SMOOTHING EXFOLIATOR [Suspect]
     Active Substance: BENZOYL PEROXIDE
     Indication: ACNE
     Dosage: TWICE DAILY , DERMAL
     Dates: start: 20140815, end: 20140818
  3. PROACTIV PLUS PORE TARGETING TREATMENT [Suspect]
     Active Substance: BENZOYL PEROXIDE
     Indication: ACNE
     Dosage: TWICE DAILY, DERMAL
     Dates: start: 20140815, end: 20140818
  4. PROACTIV PLUS SKIN PURIFYING MASK [Suspect]
     Active Substance: SULFUR
     Indication: ACNE
     Dosage: TWICE DAILY, DERMAL
     Dates: start: 20140815, end: 20140818

REACTIONS (2)
  - Urticaria [None]
  - Rash erythematous [None]

NARRATIVE: CASE EVENT DATE: 20140816
